FAERS Safety Report 8317240-1 (Version None)
Quarter: 2012Q2

REPORT INFORMATION
  Report Type: 
  Country: None (occurrence: None)
  Receive Date: 20120425
  Receipt Date: 20120413
  Transmission Date: 20120825
  Serious: Yes (Other)
  Sender: FDA-Public Use
  Company Number: DSA_56178_2012

PATIENT
  Sex: Male

DRUGS (1)
  1. BUPROPION HCL [Suspect]
     Indication: PANIC DISORDER WITH AGORAPHOBIA
     Dosage: 300 MG QD ORAL, 150 MG QD ORAL
     Route: 048

REACTIONS (8)
  - COGNITIVE DISORDER [None]
  - TOXICITY TO VARIOUS AGENTS [None]
  - MEMORY IMPAIRMENT [None]
  - CHEST PAIN [None]
  - AGITATION [None]
  - DISTURBANCE IN ATTENTION [None]
  - ANXIETY [None]
  - MOTOR DYSFUNCTION [None]
